FAERS Safety Report 8422959-8 (Version None)
Quarter: 2012Q2

REPORT INFORMATION
  Report Type: 
  Country: None (occurrence: None)
  Receive Date: 20120608
  Receipt Date: 20120601
  Transmission Date: 20120825
  Serious: Yes (Hospitalization)
  Sender: FDA-Public Use
  Company Number: FR-GLAXOSMITHKLINE-B0805443A

PATIENT
  Sex: Female
  Weight: 63 kg

DRUGS (7)
  1. AMOXICILLIN [Concomitant]
     Dosage: 1G FOUR TIMES PER DAY
     Dates: start: 20120401
  2. NSAIDS [Concomitant]
  3. ARIXTRA [Suspect]
     Indication: PRODUCT USED FOR UNKNOWN INDICATION
     Dosage: 7.5MG PER DAY
     Route: 058
     Dates: start: 20120323, end: 20120519
  4. PENTOXIFYLLINE [Concomitant]
     Dates: start: 20100701
  5. CIPROFLOXACIN HYDROCHLORIDE [Concomitant]
     Dosage: 750UNIT TWICE PER DAY
     Dates: start: 20120401
  6. BACTRIM [Concomitant]
     Dates: start: 20120401
  7. CORTICOSTEROIDS [Concomitant]

REACTIONS (3)
  - HAEMATURIA [None]
  - INCORRECT DRUG ADMINISTRATION DURATION [None]
  - HAEMORRHAGIC ANAEMIA [None]
